FAERS Safety Report 6293160-1 (Version None)
Quarter: 2009Q3

REPORT INFORMATION
  Report Type: 
  Country: None (occurrence: None)
  Receive Date: 20090731
  Receipt Date: 20090724
  Transmission Date: 20100115
  Serious: Yes (Other)
  Sender: FDA-Public Use
  Company Number: US-JNJCH-2009020274

PATIENT
  Age: 57 Year
  Sex: Female
  Weight: 63.5 kg

DRUGS (3)
  1. TUCKS TOPICAL STARCH HEMORRHOIDAL SUPPOSITORIES [Suspect]
     Indication: HAEMORRHOIDS
     Dosage: TEXT:1 SUPPOSITORY 1 X DAILY
     Route: 054
     Dates: start: 20090718, end: 20090724
  2. SYNTHROID [Concomitant]
     Indication: THYROID DISORDER
     Dosage: TEXT:1 X DAY
     Route: 065
  3. TOPROL-XL [Concomitant]
     Indication: BLOOD PRESSURE
     Dosage: TEXT:1 X A DAY
     Route: 065

REACTIONS (3)
  - BACK PAIN [None]
  - HEADACHE [None]
  - THROAT TIGHTNESS [None]
